FAERS Safety Report 4907363-9 (Version None)
Quarter: 2006Q1

REPORT INFORMATION
  Report Type: 
  Country: None (occurrence: None)
  Receive Date: 20060208
  Receipt Date: 20060208
  Transmission Date: 20060701
  Serious: Yes (Hospitalization)
  Sender: FDA-Public Use
  Company Number: None

PATIENT
  Age: 52 Year
  Sex: Male

DRUGS (10)
  1. METOPROLOL [Suspect]
     Indication: HYPERTENSION
     Dosage: 5MG IV PUSH Q6H
     Dates: start: 20051215, end: 20051216
  2. ACETAMINOPHEN [Concomitant]
  3. CEFAZOLIN [Concomitant]
  4. HEPARIN [Concomitant]
  5. METOCLOPRAMIDE HCL [Concomitant]
  6. METOPROLOL [Concomitant]
  7. METRONIDAZOLE/SODIUM CHLORIDE [Concomitant]
  8. MORPHINE SULFATE [Concomitant]
  9. RANITIDINE/SODIUM CHLORIDE [Concomitant]
  10. HYDRALAZINE HCL [Concomitant]

REACTIONS (2)
  - ATRIOVENTRICULAR BLOCK COMPLETE [None]
  - POST PROCEDURAL COMPLICATION [None]
